FAERS Safety Report 8543170-6 (Version None)
Quarter: 2012Q3

REPORT INFORMATION
  Report Type: 
  Country: None (occurrence: None)
  Receive Date: 20120716
  Receipt Date: 20120702
  Transmission Date: 20120928
  Serious: Yes (Other)
  Sender: FDA-Public Use
  Company Number: AUR-APL-2012-01091

PATIENT
  Age: 46 Year
  Sex: Female
  Weight: 109 kg

DRUGS (7)
  1. CELEXA [Concomitant]
  2. TRAZODONE HCL [Concomitant]
  3. NEURONTIN [Suspect]
     Indication: DIABETIC NEUROPATHY
     Dosage: 1200 MG (400 MG, 3 I N1 D)
     Dates: start: 20100101
  4. PRINZIDE [Concomitant]
  5. METFFORMIN HYDROCHLORIDE [Concomitant]
  6. ATIVAN [Concomitant]
  7. RISPERIDONE [Suspect]
     Indication: AGITATION
     Dosage: 1 DOSAGE FORMS, 1 D, ORAL
     Route: 048
     Dates: start: 20120201

REACTIONS (7)
  - IRRITABILITY [None]
  - BACK PAIN [None]
  - DEPRESSION [None]
  - FEAR [None]
  - FEELING ABNORMAL [None]
  - AGITATION [None]
  - BLOOD PRESSURE INCREASED [None]
